FAERS Safety Report 5787295-7 (Version None)
Quarter: 2008Q2

REPORT INFORMATION
  Report Type: 
  Country: None (occurrence: None)
  Receive Date: 20080625
  Receipt Date: 20070921
  Transmission Date: 20081010
  Serious: No
  Sender: FDA-Public Use
  Company Number: US-ASTRAZENECA-2007UW22231

PATIENT
  Age: 2 Year

DRUGS (1)
  1. PULMICORT-100 [Suspect]
     Route: 055

REACTIONS (2)
  - ACCIDENTAL EXPOSURE [None]
  - DIARRHOEA [None]
